FAERS Safety Report 15525085 (Version 2)
Quarter: 2020Q1

REPORT INFORMATION
  Report Type: Spontaneous
  Country: GB (occurrence: GB)
  Receive Date: 20181018
  Receipt Date: 20200102
  Transmission Date: 20200409
  Serious: Yes (Congenital Anomaly)
  Sender: FDA-Public Use
  Company Number: GB-TEVA-2008R096973

PATIENT
  Sex: Male
  Weight: 3.23 kg

DRUGS (3)
  1. FOLIC ACID. [Concomitant]
     Active Substance: FOLIC ACID
     Indication: FOETAL EXPOSURE TIMING UNSPECIFIED
     Dosage: .4 MILLIGRAM DAILY;
     Route: 064
     Dates: start: 19971228
  2. EPILIM [Suspect]
     Active Substance: VALPROATE SODIUM
     Indication: FOETAL EXPOSURE TIMING UNSPECIFIED
     Dosage: 800 MILLIGRAM DAILY;
     Route: 064
     Dates: end: 19971228
  3. LAMOTRIGINE. [Suspect]
     Active Substance: LAMOTRIGINE
     Indication: FOETAL EXPOSURE TIMING UNSPECIFIED
     Dosage: 300 MILLIGRAM DAILY;
     Route: 064
     Dates: end: 19971228

REACTIONS (10)
  - Foetal anticonvulsant syndrome [Unknown]
  - Developmental delay [Unknown]
  - Hypospadias [Unknown]
  - Foetal exposure during pregnancy [Unknown]
  - Hydrocele [Unknown]
  - Microcephaly [Unknown]
  - Otitis media [Unknown]
  - Gastrooesophageal reflux disease [Unknown]
  - Renal fusion anomaly [Unknown]
  - Strabismus [Unknown]

NARRATIVE: CASE EVENT DATE: 19971228
